FAERS Safety Report 9053417 (Version 1)
Quarter: 2013Q1

REPORT INFORMATION
  Report Type: Report from Study
  Country: NZ (occurrence: NZ)
  Receive Date: 20130208
  Receipt Date: 20130208
  Transmission Date: 20140127
  Serious: Yes (Death)
  Sender: FDA-Public Use
  Company Number: PHHO2004NZ04748

PATIENT
  Age: 78 None
  Sex: Male

DRUGS (6)
  1. CLOZARIL [Suspect]
     Indication: SCHIZOPHRENIA
     Route: 048
     Dates: start: 19980528
  2. MADOPAR [Concomitant]
  3. SINEMET [Concomitant]
  4. FOLIC ACID [Concomitant]
  5. LACTULOSE [Concomitant]
  6. CYCLOPENTHIAZIDE [Concomitant]

REACTIONS (1)
  - Death [Fatal]
